FAERS Safety Report 5115282-0 (Version None)
Quarter: 2006Q3

REPORT INFORMATION
  Report Type: 
  Country: None (occurrence: None)
  Receive Date: 20060926
  Receipt Date: 20060920
  Transmission Date: 20061208
  Serious: Yes (Death)
  Sender: FDA-Public Use
  Company Number: JP-JPN-A200603775

PATIENT
  Age: 68 Year
  Sex: Female

DRUGS (3)
  1. PAXIL [Suspect]
     Indication: DEPRESSION
     Dosage: 10MG PER DAY
     Route: 048
     Dates: start: 20050818, end: 20060805
  2. DEPAS [Concomitant]
     Route: 048
  3. PURSENNID [Concomitant]
     Route: 048

REACTIONS (1)
  - COMPLETED SUICIDE [None]
